FAERS Safety Report 5763954 (Version 5)
Quarter: 2020Q3

REPORT INFORMATION
  Report Type: Report from Study
  Country: US (occurrence: US)
  Receive Date: 20050323
  Receipt Date: 20090616
  Transmission Date: 20201104
  Serious: Yes (Hospitalization)
  Sender: FDA-Public Use
  Company Number: NSADSS2001030321

PATIENT
  Age: 42 Year
  Sex: Female
  Weight: 43.6 kg

DRUGS (7)
  1. CISAPRIDE [Suspect]
     Active Substance: CISAPRIDE
     Indication: GASTROOESOPHAGEAL REFLUX DISEASE
     Route: 048
     Dates: start: 20000311, end: 20010830
  2. DESOGESTREL AND ETHINYL ESTRADIOL [Concomitant]
     Active Substance: DESOGESTREL\ETHINYL ESTRADIOL
     Route: 065
  3. MIRCETTE [Concomitant]
     Active Substance: DESOGESTREL\ETHINYL ESTRADIOL
     Indication: OESTROGEN REPLACEMENT THERAPY
     Route: 048
  4. CARAFATE [Concomitant]
     Active Substance: SUCRALFATE
     Indication: ABDOMINAL PAIN UPPER
     Route: 048
  5. CISAPRIDE [Suspect]
     Active Substance: CISAPRIDE
     Route: 048
     Dates: start: 20000311, end: 20010830
  6. DARVOCET?N 100 [Concomitant]
     Active Substance: ACETAMINOPHEN\PROPOXYPHENE NAPSYLATE
     Indication: ABDOMINAL PAIN UPPER
     Dosage: 1?2 DOSES EVERY 6 HOURS, TAKEN AS REQUIRED
     Route: 065
  7. PROPOXYPHENE NAPSYLATE AND ACETAMINOPHEN [Concomitant]
     Active Substance: ACETAMINOPHEN\PROPOXYPHENE NAPSYLATE
     Route: 065

REACTIONS (5)
  - Dyspnoea [Recovered/Resolved]
  - Pneumonia [Recovered/Resolved]
  - Supraventricular tachycardia [Not Recovered/Not Resolved]
  - Lethargy [Recovered/Resolved]
  - White blood cell count increased [Recovered/Resolved]

NARRATIVE: CASE EVENT DATE: 20010821
